FAERS Safety Report 20463181 (Version 1)
Quarter: 2022Q1

REPORT INFORMATION
  Report Type: Spontaneous
  Country: US (occurrence: None)
  Receive Date: 20220207
  Receipt Date: 20220207
  Transmission Date: 20220423
  Serious: Yes (Life-Threatening)
  Sender: FDA-Public Use
  Company Number: None

PATIENT
  Sex: Female

DRUGS (3)
  1. VARITHENA [Suspect]
     Active Substance: POLIDOCANOL
     Indication: Pain in extremity
  2. VARITHENA [Suspect]
     Active Substance: POLIDOCANOL
     Indication: Vein disorder
  3. VITAMINS [Concomitant]
     Active Substance: VITAMINS

REACTIONS (2)
  - Suspected product contamination [None]
  - Injection related reaction [None]

NARRATIVE: CASE EVENT DATE: 20210315
